FAERS Safety Report 10967463 (Version 1)
Quarter: 2015Q1

REPORT INFORMATION
  Report Type: Spontaneous
  Country: JP (occurrence: JP)
  Receive Date: 20150330
  Receipt Date: 20150330
  Transmission Date: 20150721
  Serious: Yes (Hospitalization)
  Sender: FDA-Public Use
  Company Number: JP-PFIZER INC-2015105156

PATIENT
  Age: 80 Year
  Sex: Male

DRUGS (8)
  1. GASOAL [Concomitant]
     Dosage: UNK
  2. LANSOPRAZOLE. [Concomitant]
     Active Substance: LANSOPRAZOLE
  3. REMINYL [Concomitant]
     Active Substance: GALANTAMINE
     Dosage: UNK
  4. CANDESARTAN [Concomitant]
     Active Substance: CANDESARTAN
     Dosage: UNK
  5. BIO-THREE [Concomitant]
     Active Substance: HERBALS
     Dosage: UNK
  6. TOVIAZ [Suspect]
     Active Substance: FESOTERODINE FUMARATE
     Dosage: UNK
     Route: 048
  7. BLADDERON [Suspect]
     Active Substance: FLAVOXATE
     Dosage: UNK
  8. PHELLOBERIN A [Concomitant]

REACTIONS (2)
  - Hiccups [Unknown]
  - Vomiting [Unknown]
